FAERS Safety Report 8772782 (Version 1)
Quarter: 2012Q4

REPORT INFORMATION
  Report Type: 
  Country: DE (occurrence: DE)
  Receive Date: 20120907
  Receipt Date: 20120907
  Transmission Date: 20130627
  Serious: Yes (Hospitalization)
  Sender: FDA-Public Use
  Company Number: DE-PFIZER INC-2012217543

PATIENT
  Sex: Female
  Weight: 94.4 kg

DRUGS (8)
  1. GENOTROPIN MINIQUICK [Suspect]
     Indication: HYPOPITUITARISM
     Dosage: 0.2 mg, 7/wk
     Route: 058
     Dates: start: 20100108
  2. BLOPRESS PLUS [Concomitant]
     Indication: ESSENTIAL HYPERTENSION
     Dosage: UNK
     Dates: start: 20080115
  3. LAFAMME [Concomitant]
     Indication: BLOOD LUTEINISING HORMONE DECREASED
     Dosage: UNK
     Dates: start: 20080115
  4. LAFAMME [Concomitant]
     Indication: BLOOD FOLLICLE STIMULATING HORMONE DECREASED
  5. LAFAMME [Concomitant]
     Indication: HYPOGONADISM FEMALE
  6. DEKRISTOL [Concomitant]
     Indication: VITAMIN D DEFICIENCY
     Dosage: UNK
     Dates: start: 20100315
  7. L-THYROXINE [Concomitant]
     Indication: BLOOD THYROID STIMULATING HORMONE DECREASED
     Dosage: UNK
     Dates: start: 20070715
  8. L-THYROXINE [Concomitant]
     Indication: HYPERTHYROIDISM

REACTIONS (1)
  - Tooth disorder [Unknown]
